FAERS Safety Report 5482044-4 (Version None)
Quarter: 2007Q4

REPORT INFORMATION
  Report Type: 
  Country: None (occurrence: None)
  Receive Date: 20071004
  Receipt Date: 20070919
  Transmission Date: 20080405
  Serious: Yes (Other)
  Sender: FDA-Public Use
  Company Number: 2007RR-10189

PATIENT
  Age: 21 Year
  Sex: Female

DRUGS (4)
  1. AZITHROMYCIN [Suspect]
     Indication: ANTIINFLAMMATORY THERAPY
     Dates: end: 20030101
  2. COLOMYCIN (COLISTIMETHATE SODIUM) [Suspect]
     Indication: PSEUDOMONAS INFECTION
     Dosage: 2 DF, TID, INTRAVENOUS
     Route: 042
     Dates: start: 20031101
  3. IBUPROFEN [Suspect]
     Dates: start: 20030101, end: 20030101
  4. TOBRAMYCIN [Suspect]
     Indication: PSEUDOMONAS INFECTION
     Dosage: 8 MG/KG, QD, INTRAVENOUS
     Route: 042
     Dates: start: 20031101

REACTIONS (8)
  - DRUG INTERACTION [None]
  - DYSPEPSIA [None]
  - INFLUENZA LIKE ILLNESS [None]
  - ORAL INTAKE REDUCED [None]
  - POLYARTHRITIS [None]
  - RENAL FAILURE ACUTE [None]
  - VOMITING [None]
  - WEIGHT DECREASED [None]
